FAERS Safety Report 5037423-6 (Version None)
Quarter: 2006Q2

REPORT INFORMATION
  Report Type: 
  Country: None (occurrence: None)
  Receive Date: 20060628
  Receipt Date: 20060601
  Transmission Date: 20061013
  Serious: Yes (Hospitalization)
  Sender: FDA-Public Use
  Company Number: 2006UW11546

PATIENT
  Age: 78 Year
  Sex: Female

DRUGS (5)
  1. CRESTOR [Suspect]
     Route: 048
     Dates: start: 20060512
  2. BENICAR HCT [Concomitant]
     Dosage: 40/12.5
  3. CELEBREX [Concomitant]
  4. MULTI-VITAMIN [Concomitant]
  5. CALCIUM GLUCONATE [Concomitant]

REACTIONS (8)
  - BLOOD CREATINE PHOSPHOKINASE INCREASED [None]
  - BLOOD CREATININE INCREASED [None]
  - DEHYDRATION [None]
  - DELIRIUM [None]
  - FEELING COLD [None]
  - MYALGIA [None]
  - PSYCHOTIC DISORDER [None]
  - TROPONIN INCREASED [None]
